FAERS Safety Report 19761599 (Version 3)
Quarter: 2021Q4

REPORT INFORMATION
  Report Type: Spontaneous
  Country: US (occurrence: US)
  Receive Date: 20210827
  Receipt Date: 20211105
  Transmission Date: 20220303
  Serious: Yes (Other)
  Sender: FDA-Public Use
  Company Number: US-MALLINCKRODT PHARMACEUTICALS-T202002368

PATIENT
  Sex: Male
  Weight: 99 kg

DRUGS (17)
  1. H.P. ACTHAR [Suspect]
     Active Substance: CORTICOTROPIN
     Indication: Nephrotic syndrome
     Dosage: 80 UNITS, TWICE WEEKLY
     Route: 058
     Dates: start: 20200417, end: 202004
  2. H.P. ACTHAR [Suspect]
     Active Substance: CORTICOTROPIN
     Indication: Glomerulonephritis
     Dosage: 80 UNITS TWICE WEEKLY
     Route: 058
     Dates: start: 20200425, end: 2020
  3. H.P. ACTHAR [Suspect]
     Active Substance: CORTICOTROPIN
     Indication: Multiple sclerosis
     Dosage: 80 UNITS TWICE WEEKLY
     Route: 058
     Dates: start: 2020, end: 2020
  4. H.P. ACTHAR [Suspect]
     Active Substance: CORTICOTROPIN
     Dosage: 80 UNITS, TWICE PER WEEK
     Route: 058
     Dates: start: 2020
  5. H.P. ACTHAR [Suspect]
     Active Substance: CORTICOTROPIN
     Dosage: 80 UNITS TWICE WEEKLY
     Route: 058
  6. H.P. ACTHAR [Suspect]
     Active Substance: CORTICOTROPIN
     Dosage: 0.5 MILLILITER, TWICE A WEEK (WEDNESDAY AND SUNDAYS)
     Route: 058
  7. ATORVASTATIN [Concomitant]
     Active Substance: ATORVASTATIN
     Indication: Product used for unknown indication
     Dosage: UNK
     Route: 065
  8. CARVEDILOL [Concomitant]
     Active Substance: CARVEDILOL
     Indication: Product used for unknown indication
     Dosage: UNK
     Route: 065
  9. EZETIMIBE [Concomitant]
     Active Substance: EZETIMIBE
     Indication: Product used for unknown indication
     Dosage: UNK
     Route: 065
  10. BUMETANIDE [Concomitant]
     Active Substance: BUMETANIDE
     Indication: Diuretic therapy
     Dosage: UNK
     Route: 065
  11. BUMETANIDE [Concomitant]
     Active Substance: BUMETANIDE
     Dosage: 2MG, PO IN AM AND PM DAILY
     Route: 048
  12. MYCOPHENOLIC ACID [Concomitant]
     Active Substance: MYCOPHENOLIC ACID
     Indication: Product used for unknown indication
     Dosage: UNK
     Route: 065
  13. FUROSEMIDE [Concomitant]
     Active Substance: FUROSEMIDE
     Indication: Diuretic therapy
     Dosage: UNK
     Route: 065
  14. DOXYCYCLINE [Concomitant]
     Active Substance: DOXYCYCLINE
     Indication: Product used for unknown indication
     Dosage: UNK
     Route: 065
  15. RISEDRONATE SODIUM [Concomitant]
     Active Substance: RISEDRONATE SODIUM
     Indication: Product used for unknown indication
     Dosage: UNK
     Route: 065
  16. VITAMIN C [Concomitant]
     Active Substance: ASCORBIC ACID
     Indication: Product used for unknown indication
     Dosage: UNK
     Route: 065
  17. VITAMIN D [Concomitant]
     Active Substance: VITAMIN D NOS
     Indication: Product used for unknown indication
     Dosage: UNK
     Route: 065

REACTIONS (27)
  - Weight increased [Not Recovered/Not Resolved]
  - Neoplasm malignant [Unknown]
  - Cancer surgery [Unknown]
  - COVID-19 [Unknown]
  - Nephritis [Unknown]
  - Dry skin [Not Recovered/Not Resolved]
  - Discomfort [Unknown]
  - Gastrointestinal disorder [Unknown]
  - Back pain [Unknown]
  - Feeling abnormal [Unknown]
  - Renal pain [Unknown]
  - Wheezing [Not Recovered/Not Resolved]
  - Somnolence [Unknown]
  - Dyspnoea [Unknown]
  - Asthenia [Not Recovered/Not Resolved]
  - Fatigue [Not Recovered/Not Resolved]
  - Abdominal distension [Not Recovered/Not Resolved]
  - Fluid retention [Not Recovered/Not Resolved]
  - Rash [Not Recovered/Not Resolved]
  - Irritability [Not Recovered/Not Resolved]
  - Insomnia [Not Recovered/Not Resolved]
  - Swelling [Not Recovered/Not Resolved]
  - Oedema [Unknown]
  - Peripheral swelling [Not Recovered/Not Resolved]
  - Product dose omission issue [Recovered/Resolved]
  - Liquid product physical issue [Not Recovered/Not Resolved]
  - Therapeutic product effect delayed [Recovering/Resolving]

NARRATIVE: CASE EVENT DATE: 20200101
